FAERS Safety Report 14651423 (Version 2)
Quarter: 2018Q1

REPORT INFORMATION
  Report Type: Spontaneous
  Country: US (occurrence: US)
  Receive Date: 20180316
  Receipt Date: 20180323
  Transmission Date: 20180509
  Serious: Yes (Death)
  Sender: FDA-Public Use
  Company Number: US-ROCHE-2089606

PATIENT
  Age: 45 Year
  Sex: Female

DRUGS (1)
  1. ZELBORAF [Suspect]
     Active Substance: VEMURAFENIB
     Indication: MALIGNANT MELANOMA
     Dosage: 4 TABS 2 TIMES DAILY
     Route: 048
     Dates: start: 20171215, end: 20180310

REACTIONS (1)
  - Death [Fatal]

NARRATIVE: CASE EVENT DATE: 20180310
